FAERS Safety Report 6832645-3 (Version None)
Quarter: 2010Q3

REPORT INFORMATION
  Report Type: 
  Country: None (occurrence: None)
  Receive Date: 20100712
  Receipt Date: 20070316
  Transmission Date: 20110219
  Serious: No
  Sender: FDA-Public Use
  Company Number: US-PFIZER INC-2007021623

PATIENT
  Sex: Female
  Weight: 80.29 kg

DRUGS (9)
  1. CHANTIX [Suspect]
     Indication: SMOKING CESSATION THERAPY
     Dates: start: 20070307
  2. KNOX NUTRAJOINT [Concomitant]
  3. GENERAL NUTRIENTS/MINERALS/VITAMINS [Concomitant]
  4. CALTRATE + D [Concomitant]
  5. MULTI-VITAMINS [Concomitant]
  6. ACETYLSALICYLIC ACID [Concomitant]
  7. TYLENOL PM [Concomitant]
  8. MELOXICAM [Concomitant]
     Indication: ARTHRITIS
  9. EXTRA STRENGTH TYLENOL [Concomitant]

REACTIONS (2)
  - DRUG DOSE OMISSION [None]
  - INSOMNIA [None]
